FAERS Safety Report 4917831-1 (Version None)
Quarter: 2006Q1

REPORT INFORMATION
  Report Type: 
  Country: None (occurrence: None)
  Receive Date: 20060113
  Receipt Date: 20051018
  Transmission Date: 20060701
  Serious: No
  Sender: FDA-Public Use
  Company Number: 2005SP003576

PATIENT
  Age: 57 Year
  Sex: Female
  Weight: 63.5036 kg

DRUGS (4)
  1. LUNESTA [Suspect]
     Indication: INITIAL INSOMNIA
     Dosage: 3 MG; HS; ORAL
     Route: 048
     Dates: start: 20051017, end: 20051017
  2. ATORVASTATIN CALCIUM [Concomitant]
  3. NEXIUM [Concomitant]
  4. SYNTHROID [Concomitant]

REACTIONS (1)
  - DYSGEUSIA [None]
